FAERS Safety Report 6860705-X (Version None)
Quarter: 2010Q3

REPORT INFORMATION
  Report Type: 
  Country: None (occurrence: None)
  Receive Date: 20100720
  Receipt Date: 20100706
  Transmission Date: 20110219
  Serious: Yes (Other)
  Sender: FDA-Public Use
  Company Number: PHEH2006US12309

PATIENT
  Sex: Female
  Weight: 74.829 kg

DRUGS (12)
  1. AREDIA [Suspect]
     Indication: BONE DENSITY DECREASED
     Dosage: 90 MG MONTHLY
  2. ZOMETA [Suspect]
  3. NORVASC [Concomitant]
     Dosage: 2.5 MG, UNK
  4. MAXZIDE [Concomitant]
     Dosage: ^25/375 MG^ BID
  5. CALCITRIOL [Concomitant]
     Dosage: 0.25 MG, UNK
  6. LISINOPRIL [Concomitant]
     Dosage: 40 MG, UNK
  7. PENICILLIN NOS [Concomitant]
     Dosage: 500 MG, UNK
  8. VITAMIN B6 [Concomitant]
  9. PEPCID [Concomitant]
     Dosage: 20 MG, UNK
  10. FUROSEMIDE [Concomitant]
     Dosage: 20 MG, UNK
  11. ARICEPT [Concomitant]
  12. DECADRON [Concomitant]

REACTIONS (33)
  - ALVEOLOPLASTY [None]
  - ANAEMIA OF CHRONIC DISEASE [None]
  - ANGIOPLASTY [None]
  - ANXIETY [None]
  - ARTERIOVENOUS FISTULA SITE COMPLICATION [None]
  - ARTERIOVENOUS SHUNT OPERATION [None]
  - BLOOD CREATININE INCREASED [None]
  - BONE DISORDER [None]
  - CATARACT [None]
  - CATARACT OPERATION [None]
  - COMPRESSION FRACTURE [None]
  - DEBRIDEMENT [None]
  - DEMENTIA [None]
  - DIALYSIS [None]
  - FOOT FRACTURE [None]
  - HALLUCINATION [None]
  - HYPERPARATHYROIDISM [None]
  - INJURY [None]
  - NEPHROPATHY TOXIC [None]
  - NEPHROSCLEROSIS [None]
  - NEUROPATHY PERIPHERAL [None]
  - OEDEMA MOUTH [None]
  - OPEN WOUND [None]
  - OSTEOMYELITIS [None]
  - OSTEONECROSIS OF JAW [None]
  - PAIN [None]
  - PHYSICAL DISABILITY [None]
  - POOR PERSONAL HYGIENE [None]
  - PROTEINURIA [None]
  - RENAL FAILURE CHRONIC [None]
  - SWELLING [None]
  - TOOTH DISORDER [None]
  - TOOTH EXTRACTION [None]
